FAERS Safety Report 7275481-9 (Version None)
Quarter: 2011Q1

REPORT INFORMATION
  Report Type: 
  Country: None (occurrence: None)
  Receive Date: 20110202
  Receipt Date: 20110202
  Transmission Date: 20110831
  Serious: Yes (Other)
  Sender: FDA-Public Use
  Company Number: None

PATIENT
  Age: 70 Year
  Sex: Female
  Weight: 56 kg

DRUGS (1)
  1. MORPHINE [Suspect]
     Indication: CHEST PAIN
     Dosage: 2 MG ONCE IV BOLUS
     Route: 040
     Dates: start: 20101201, end: 20101201

REACTIONS (3)
  - INFUSION SITE PRURITUS [None]
  - INFUSION SITE ERYTHEMA [None]
  - INFUSION SITE VESICLES [None]
